FAERS Safety Report 13653994 (Version 8)
Quarter: 2018Q4

REPORT INFORMATION
  Report Type: Report from Study
  Country: JP (occurrence: JP)
  Receive Date: 20170614
  Receipt Date: 20181002
  Transmission Date: 20190204
  Serious: Yes (Life-Threatening, Hospitalization, Other)
  Sender: FDA-Public Use
  Company Number: JP-BRISTOL-MYERS SQUIBB COMPANY-BMS-2017-050844

PATIENT
  Age: 64 Year
  Sex: Male

DRUGS (1)
  1. NIVOLUMAB [Suspect]
     Active Substance: NIVOLUMAB
     Indication: METASTATIC RENAL CELL CARCINOMA
     Dosage: 3 MG/KG, UNK
     Route: 041
     Dates: start: 20161129

REACTIONS (8)
  - Vision blurred [Recovered/Resolved]
  - Angina pectoris [Recovering/Resolving]
  - Coronary artery stenosis [Unknown]
  - Inappropriate schedule of product administration [Unknown]
  - Percutaneous coronary intervention [Unknown]
  - Fatigue [Not Recovered/Not Resolved]
  - Stent placement [Unknown]
  - Diarrhoea [Recovered/Resolved]

NARRATIVE: CASE EVENT DATE: 20161227
